FAERS Safety Report 7344702-6 (Version None)
Quarter: 2011Q1

REPORT INFORMATION
  Report Type: 
  Country: None (occurrence: None)
  Receive Date: 20110307
  Receipt Date: 20110307
  Transmission Date: 20110831
  Serious: Yes (Hospitalization)
  Sender: FDA-Public Use
  Company Number: None

PATIENT
  Age: 49 Year
  Sex: Male
  Weight: 120.2032 kg

DRUGS (4)
  1. DIOVAN HCT [Suspect]
     Indication: HYPERTENSION
     Dosage: 1/2 TABLET ONCE DAILY, 1 TABLET 2 TIMES A DAY
     Dates: start: 20110211, end: 20110224
  2. DIOVAN HCT [Suspect]
     Indication: LIMB INJURY
     Dosage: 1/2 TABLET ONCE DAILY, 1 TABLET 2 TIMES A DAY
     Dates: start: 20110211, end: 20110224
  3. DIOVAN HCT [Suspect]
     Indication: HYPERTENSION
     Dosage: 1/2 TABLET ONCE DAILY, 1 TABLET 2 TIMES A DAY
     Dates: start: 20090101, end: 20110303
  4. DIOVAN HCT [Suspect]
     Indication: LIMB INJURY
     Dosage: 1/2 TABLET ONCE DAILY, 1 TABLET 2 TIMES A DAY
     Dates: start: 20090101, end: 20110303

REACTIONS (7)
  - LIMB INJURY [None]
  - HYPERTENSION [None]
  - CEREBROVASCULAR ACCIDENT [None]
  - MEMORY IMPAIRMENT [None]
  - FLUID RETENTION [None]
  - OLIGURIA [None]
  - CONFUSIONAL STATE [None]
